FAERS Safety Report 15999508 (Version 1)
Quarter: 2019Q1

REPORT INFORMATION
  Report Type: Spontaneous
  Country: US (occurrence: US)
  Receive Date: 20190222
  Receipt Date: 20190222
  Transmission Date: 20190418
  Serious: Yes (Other)
  Sender: FDA-Public Use
  Company Number: None

PATIENT
  Age: 62 Year
  Sex: Male
  Weight: 88.5 kg

DRUGS (4)
  1. DIPHENHYDRAMINE. [Concomitant]
     Active Substance: DIPHENHYDRAMINE
     Dates: start: 20190219, end: 20190219
  2. METHYLPREDNISOLONE. [Concomitant]
     Active Substance: METHYLPREDNISOLONE
     Dates: start: 20190219, end: 20190219
  3. ONPATTRO [Suspect]
     Active Substance: PATISIRAN SODIUM
     Indication: AMYLOIDOSIS
     Dosage: ?          OTHER FREQUENCY:Q 3 WEEKS;?
     Route: 041
     Dates: start: 20190219, end: 20190219
  4. RANITIDINE. [Concomitant]
     Active Substance: RANITIDINE
     Dates: start: 20190219, end: 20190219

REACTIONS (3)
  - Infusion related reaction [None]
  - Chest pain [None]
  - Back pain [None]

NARRATIVE: CASE EVENT DATE: 20190219
